FAERS Safety Report 8108912-2 (Version None)
Quarter: 2012Q1

REPORT INFORMATION
  Report Type: 
  Country: None (occurrence: None)
  Receive Date: 20120202
  Receipt Date: 20120131
  Transmission Date: 20120608
  Serious: Yes (Hospitalization)
  Sender: FDA-Public Use
  Company Number: US-GLAXOSMITHKLINE-B0705575A

PATIENT
  Sex: Female
  Weight: 127.3 kg

DRUGS (11)
  1. LANTUS [Concomitant]
  2. GLIPIZIDE [Concomitant]
  3. ADVAIR DISKUS 100/50 [Concomitant]
  4. AVANDIA [Suspect]
     Indication: DIABETES MELLITUS
     Dosage: 4MG TWICE PER DAY
     Route: 048
     Dates: start: 20050701
  5. CORGARD [Concomitant]
  6. LASIX [Concomitant]
  7. NORVASC [Concomitant]
  8. QUINAPRIL [Concomitant]
  9. AVANDAMET [Suspect]
     Indication: DIABETES MELLITUS
     Route: 048
     Dates: start: 20070101, end: 20090602
  10. NITROGLYCERIN [Concomitant]
  11. ACCUPRIL [Concomitant]

REACTIONS (3)
  - MYOCARDIAL INFARCTION [None]
  - CEREBELLAR INFARCTION [None]
  - CARDIAC FAILURE CONGESTIVE [None]
